FAERS Safety Report 13164980 (Version 1)
Quarter: 2017Q1

REPORT INFORMATION
  Report Type: Spontaneous
  Country: US (occurrence: US)
  Receive Date: 20170130
  Receipt Date: 20170130
  Transmission Date: 20170428
  Serious: No
  Sender: FDA-Public Use
  Company Number: US-ALLERGAN-1674658US

PATIENT
  Age: 66 Year
  Sex: Female

DRUGS (1)
  1. ALORA [Suspect]
     Active Substance: ESTRADIOL
     Indication: PRODUCT USED FOR UNKNOWN INDICATION
     Dosage: 0.05 MG, UNK
     Route: 062

REACTIONS (4)
  - Product adhesion issue [Unknown]
  - Hot flush [Not Recovered/Not Resolved]
  - Bone density decreased [Not Recovered/Not Resolved]
  - Night sweats [Not Recovered/Not Resolved]
